FAERS Safety Report 24888427 (Version 1)
Quarter: 2025Q1

REPORT INFORMATION
  Report Type: Spontaneous
  Country: SE (occurrence: SE)
  Receive Date: 20250127
  Receipt Date: 20250127
  Transmission Date: 20250409
  Serious: Yes (Disabling)
  Sender: TEVA
  Company Number: SE-TEVA-VS-3288859

PATIENT
  Age: 57 Year
  Sex: Female

DRUGS (1)
  1. METFORMIN [Suspect]
     Active Substance: METFORMIN HYDROCHLORIDE
     Indication: Product used for unknown indication
     Route: 065

REACTIONS (6)
  - Disability [Unknown]
  - Dizziness [Unknown]
  - Bradycardia [Unknown]
  - Cognitive disorder [Unknown]
  - Nausea [Unknown]
  - Fatigue [Unknown]
